FAERS Safety Report 7986034-9 (Version None)
Quarter: 2011Q4

REPORT INFORMATION
  Report Type: 
  Country: None (occurrence: None)
  Receive Date: 20111216
  Receipt Date: 20110105
  Transmission Date: 20120403
  Serious: No
  Sender: FDA-Public Use
  Company Number: US-BRISTOL-MYERS SQUIBB COMPANY-15473135

PATIENT
  Age: 33 Year
  Sex: Male

DRUGS (3)
  1. ABILIFY [Suspect]
     Indication: SCHIZOPHRENIA
     Dosage: DOSE INCREASED FROM 10,15 AND THEN 20MG IN JUN09 SKIPPING ABILIFY PILLS
     Dates: start: 20030101, end: 20100301
  2. DEPAKOTE [Suspect]
  3. ABILIFY [Suspect]
     Indication: BIPOLAR DISORDER
     Dosage: DOSE INCREASED FROM 10,15 AND THEN 20MG IN JUN09 SKIPPING ABILIFY PILLS
     Dates: start: 20030101, end: 20100301

REACTIONS (1)
  - TREMOR [None]
